FAERS Safety Report 12317200 (Version 1)
Quarter: 2016Q2

REPORT INFORMATION
  Report Type: Report from Study
  Country: US (occurrence: US)
  Receive Date: 20160429
  Receipt Date: 20160429
  Transmission Date: 20160815
  Serious: Yes (Hospitalization)
  Sender: FDA-Public Use
  Company Number: US-GILEAD-2016-0208550

PATIENT
  Age: 52 Year
  Sex: Female
  Weight: 178.23 kg

DRUGS (28)
  1. ZOCOR [Concomitant]
     Active Substance: SIMVASTATIN
  2. LEVEMIR [Concomitant]
     Active Substance: INSULIN DETEMIR
  3. AMBRISENTAN [Suspect]
     Active Substance: AMBRISENTAN
     Indication: PRODUCT USED FOR UNKNOWN INDICATION
     Dosage: 10 MG, QD
     Route: 065
  4. ADVAIR HFA [Concomitant]
     Active Substance: FLUTICASONE PROPIONATE\SALMETEROL XINAFOATE
  5. K-DUR [Concomitant]
     Active Substance: POTASSIUM CHLORIDE
  6. EFFEXOR [Concomitant]
     Active Substance: VENLAFAXINE HYDROCHLORIDE
  7. PROAIR HFA [Concomitant]
     Active Substance: ALBUTEROL SULFATE
  8. FISH OIL [Concomitant]
     Active Substance: FISH OIL
  9. PREDNISONE. [Concomitant]
     Active Substance: PREDNISONE
  10. MIRAPEX [Concomitant]
     Active Substance: PRAMIPEXOLE DIHYDROCHLORIDE
  11. ZITHROMAX [Concomitant]
     Active Substance: AZITHROMYCIN DIHYDRATE
  12. PRILOSEC [Concomitant]
     Active Substance: OMEPRAZOLE MAGNESIUM
  13. LEVSIN [Concomitant]
     Active Substance: HYOSCYAMINE SULFATE
  14. VOLTAREN [Concomitant]
     Active Substance: DICLOFENAC SODIUM
  15. TRAZODONE [Concomitant]
     Active Substance: TRAZODONE HYDROCHLORIDE
  16. VITAMIN E                          /00110501/ [Concomitant]
     Active Substance: TOCOPHEROL
  17. ALBUTEROL                          /00139501/ [Concomitant]
     Active Substance: ALBUTEROL
  18. LASIX [Concomitant]
     Active Substance: FUROSEMIDE
  19. MINIPRESS [Concomitant]
     Active Substance: PRAZOSIN HYDROCHLORIDE
  20. OXYCODONE [Concomitant]
     Active Substance: OXYCODONE
  21. COZAAR [Concomitant]
     Active Substance: LOSARTAN POTASSIUM
  22. RISPERDAL [Concomitant]
     Active Substance: RISPERIDONE
  23. ESTRACE [Concomitant]
     Active Substance: ESTRADIOL
  24. NOVOLOG [Concomitant]
     Active Substance: INSULIN ASPART
  25. VITAMIN C [Concomitant]
     Active Substance: ASCORBIC ACID
  26. VITAMIN D                          /00107901/ [Concomitant]
     Active Substance: ERGOCALCIFEROL
  27. IRON SULFATE [Concomitant]
     Active Substance: FERROUS SULFATE ANHYDROUS
  28. VITAMIN B [Concomitant]
     Active Substance: VITAMIN B

REACTIONS (1)
  - Blood iron decreased [Unknown]
